FAERS Safety Report 4875707-2 (Version None)
Quarter: 2006Q1

REPORT INFORMATION
  Report Type: 
  Country: None (occurrence: None)
  Receive Date: 20060105
  Receipt Date: 20051220
  Transmission Date: 20060701
  Serious: Yes (Other)
  Sender: FDA-Public Use
  Company Number: 220474

PATIENT
  Age: 65 Year
  Sex: Female

DRUGS (10)
  1. CATHFLO ACTIVASE [Suspect]
     Indication: CATHETER RELATED COMPLICATION
     Dosage: 2 MG; SEE IMAGE
     Dates: start: 20050914, end: 20051107
  2. CATHFLO ACTIVASE [Suspect]
     Indication: CATHETER RELATED COMPLICATION
     Dosage: 2 MG; SEE IMAGE
     Dates: start: 20051109, end: 20051202
  3. CATHFLO ACTIVASE [Suspect]
     Indication: CATHETER RELATED COMPLICATION
     Dosage: 2 MG; SEE IMAGE
     Dates: start: 20051207, end: 20051207
  4. CATHFLO ACTIVASE [Suspect]
     Indication: CATHETER RELATED COMPLICATION
     Dosage: 2 MG; SEE IMAGE
     Dates: start: 20051212
  5. WARFARIN SODIUM [Suspect]
     Dosage: TABLET, QD, ORAL
     Route: 048
  6. CALCIUM CARBONATE (CALCIUM CARBONATE) [Concomitant]
  7. DILANTIN [Concomitant]
  8. ZOCOR [Concomitant]
  9. LOSEC (OMEPRAZOLE) [Concomitant]
  10. CLOBAZAM (CLOBAZAM) [Concomitant]

REACTIONS (9)
  - ANTICOAGULATION DRUG LEVEL [None]
  - CATHETER RELATED COMPLICATION [None]
  - COAGULOPATHY [None]
  - CONVULSION [None]
  - DRUG INEFFECTIVE [None]
  - LOSS OF CONSCIOUSNESS [None]
  - MEDICAL DEVICE COMPLICATION [None]
  - PRURITUS GENERALISED [None]
  - REFUSAL OF TREATMENT BY PATIENT [None]
